FAERS Safety Report 12253709 (Version 1)
Quarter: 2016Q2

REPORT INFORMATION
  Report Type: Spontaneous
  Country: US (occurrence: US)
  Receive Date: 20160411
  Receipt Date: 20160411
  Transmission Date: 20160815
  Serious: No
  Sender: FDA-Public Use
  Company Number: PHEH2016US008594

PATIENT

DRUGS (2)
  1. ARCAPTA NEOHALER [Suspect]
     Active Substance: INDACATEROL MALEATE
     Indication: PRODUCT USED FOR UNKNOWN INDICATION
     Dosage: UNK
     Route: 065
  2. ARCAPTA NEOHALER [Suspect]
     Active Substance: INDACATEROL MALEATE
     Dosage: UNK UNK, ONCE/SINGLE
     Route: 048

REACTIONS (1)
  - Incorrect route of drug administration [Unknown]
